FAERS Safety Report 4423446-4 (Version None)
Quarter: 2004Q3

REPORT INFORMATION
  Report Type: 
  Country: None (occurrence: None)
  Receive Date: 20040806
  Receipt Date: 20040729
  Transmission Date: 20050211
  Serious: Yes (Death, Hospitalization)
  Sender: FDA-Public Use
  Company Number: 028-20785-03030400

PATIENT
  Age: 70 Year
  Sex: Female

DRUGS (13)
  1. THALOMID [Suspect]
     Indication: MULTIPLE MYELOMA
     Dosage: SEE IMAGE
     Route: 048
     Dates: start: 20030201, end: 20030801
  2. THALOMID [Suspect]
     Indication: MULTIPLE MYELOMA
     Dosage: SEE IMAGE
     Route: 048
     Dates: end: 20040401
  3. THALOMID [Suspect]
     Indication: MULTIPLE MYELOMA
     Dosage: SEE IMAGE
     Route: 048
     Dates: start: 20040422, end: 20040717
  4. THALOMID [Suspect]
     Indication: MULTIPLE MYELOMA
     Dosage: SEE IMAGE
     Route: 048
     Dates: start: 20011101
  5. THALOMID [Suspect]
  6. THALOMID [Suspect]
  7. THALOMID [Suspect]
  8. THALOMID [Suspect]
  9. AREDIA [Concomitant]
  10. LASIX [Concomitant]
  11. DECADRON [Concomitant]
  12. VINCRISTINE [Concomitant]
  13. ADRIAMYCIN PFS [Concomitant]

REACTIONS (14)
  - BACK PAIN [None]
  - HAEMODIALYSIS [None]
  - HYPERCALCAEMIA [None]
  - MALIGNANT NEOPLASM PROGRESSION [None]
  - MULTIPLE MYELOMA [None]
  - MUSCLE ATROPHY [None]
  - MYALGIA [None]
  - OEDEMA PERIPHERAL [None]
  - OSTEOLYSIS [None]
  - PAIN EXACERBATED [None]
  - PANCYTOPENIA [None]
  - RENAL FAILURE ACUTE [None]
  - SEPTIC SHOCK [None]
  - SOMNOLENCE [None]
